FAERS Safety Report 18179324 (Version 3)
Quarter: 2020Q3

REPORT INFORMATION
  Report Type: Spontaneous
  Country: CN (occurrence: CN)
  Receive Date: 20200820
  Receipt Date: 20200902
  Transmission Date: 20201103
  Serious: Yes (Other)
  Sender: FDA-Public Use
  Company Number: CN-GILEAD-2020-0489307

PATIENT
  Age: 55 Year
  Sex: Male

DRUGS (1)
  1. VEMLIDY [Suspect]
     Active Substance: TENOFOVIR ALAFENAMIDE FUMARATE
     Indication: HEPATITIS B
     Dosage: 1 DOSAGE FORM, QD
     Route: 048
     Dates: start: 202001

REACTIONS (6)
  - Bilirubin conjugated increased [Not Recovered/Not Resolved]
  - Hepatitis B DNA increased [Unknown]
  - Counterfeit product administered [Unknown]
  - Blood bilirubin unconjugated increased [Not Recovered/Not Resolved]
  - Drug ineffective [Unknown]
  - Blood bilirubin increased [Not Recovered/Not Resolved]

NARRATIVE: CASE EVENT DATE: 2020
